FAERS Safety Report 25943818 (Version 1)
Quarter: 2025Q4

REPORT INFORMATION
  Report Type: Other
  Country: GB (occurrence: GB)
  Receive Date: 20251021
  Receipt Date: 20251021
  Transmission Date: 20260118
  Serious: Yes (Other)
  Sender: GLENMARK
  Company Number: GB-MHRA-TPP62099037C10466792YC1759857820048

PATIENT
  Age: 4 Year
  Sex: Male
  Weight: 20 kg

DRUGS (4)
  1. MONTELUKAST SODIUM [Suspect]
     Active Substance: MONTELUKAST SODIUM
     Indication: Ill-defined disorder
     Dosage: 4 MILLIGRAM, QD (CHEW ONE TABLET AT NIGHT)
     Route: 065
     Dates: start: 20250926
  2. BECLOMETHASONE DIPROPIONATE [Concomitant]
     Active Substance: BECLOMETHASONE DIPROPIONATE
     Indication: Ill-defined disorder
     Dosage: 2 DOSAGE FORM, BID (TWO PUFFS TO BE INHALED TWICE DAILY.)
     Dates: start: 20250519
  3. MINERAL OIL\PARAFFIN [Concomitant]
     Active Substance: MINERAL OIL\PARAFFIN
     Indication: Ill-defined disorder
     Dosage: UNK (TO BE APPLIED AS A MOISTURISER TO THE AFFECTED)
     Route: 065
     Dates: start: 20250519
  4. ALBUTEROL [Concomitant]
     Active Substance: ALBUTEROL
     Indication: Asthma
     Dosage: UNK, PRN (INHALE ONE OR TWO PUFFS AS NEEDED FOR ASTHMA SY)
     Dates: start: 20250519

REACTIONS (2)
  - Anxiety [Recovering/Resolving]
  - Abnormal behaviour [Unknown]
